FAERS Safety Report 4404174-8 (Version None)
Quarter: 2004Q3

REPORT INFORMATION
  Report Type: 
  Country: None (occurrence: None)
  Receive Date: 20040721
  Receipt Date: 20040721
  Transmission Date: 20050211
  Serious: Yes (Disabling, Other)
  Sender: FDA-Public Use
  Company Number: None

PATIENT
  Sex: Female
  Weight: 92.5338 kg

DRUGS (6)
  1. VIOXX [Suspect]
     Indication: OVARIAN CYST
     Dosage: 50 MG DAILY
     Dates: start: 20011221
  2. VIOXX [Suspect]
     Indication: UTERINE LEIOMYOMA
     Dosage: 50 MG DAILY
     Dates: start: 20011221
  3. VICODIN [Concomitant]
  4. GLUCOPHAGE [Concomitant]
  5. ALBUTEROL [Concomitant]
  6. AEROBID [Concomitant]

REACTIONS (11)
  - ABDOMINAL PAIN [None]
  - BACK PAIN [None]
  - BEDRIDDEN [None]
  - CONDITION AGGRAVATED [None]
  - DISEASE RECURRENCE [None]
  - GENERALISED OEDEMA [None]
  - HYPERSENSITIVITY [None]
  - INTERVERTEBRAL DISC PROTRUSION [None]
  - LOSS OF EMPLOYMENT [None]
  - NEOPLASM [None]
  - WHEEZING [None]
